FAERS Safety Report 7663515-9 (Version None)
Quarter: 2011Q3

REPORT INFORMATION
  Report Type: 
  Country: None (occurrence: None)
  Receive Date: 20110805
  Receipt Date: 20100916
  Transmission Date: 20111222
  Serious: No
  Sender: FDA-Public Use
  Company Number: US-ABBOTT-10P-163-0671202-00

PATIENT
  Sex: Female

DRUGS (1)
  1. NIASPAN [Suspect]
     Indication: PRODUCT USED FOR UNKNOWN INDICATION
     Dates: start: 20100909

REACTIONS (5)
  - DYSPNOEA [None]
  - CHEST DISCOMFORT [None]
  - ABDOMINAL PAIN [None]
  - OROPHARYNGEAL PAIN [None]
  - HYPERSENSITIVITY [None]
